FAERS Safety Report 15968993 (Version 1)
Quarter: 2019Q1

REPORT INFORMATION
  Report Type: Spontaneous
  Country: FR (occurrence: FR)
  Receive Date: 20190215
  Receipt Date: 20190215
  Transmission Date: 20190418
  Serious: Yes (Hospitalization)
  Sender: FDA-Public Use
  Company Number: FR-PFIZER INC-2019061519

PATIENT
  Age: 13 Year
  Sex: Male
  Weight: 70 kg

DRUGS (1)
  1. LYRICA [Suspect]
     Active Substance: PREGABALIN
     Dosage: 4 DF, AS NEEDED
     Dates: start: 20181001, end: 20181001

REACTIONS (4)
  - Off label use [Recovered/Resolved]
  - Product use issue [Recovered/Resolved]
  - Drug use disorder [Not Recovered/Not Resolved]
  - Somnolence [Recovered/Resolved]

NARRATIVE: CASE EVENT DATE: 20181001
